FAERS Safety Report 6031191-7 (Version None)
Quarter: 2009Q1

REPORT INFORMATION
  Report Type: 
  Country: None (occurrence: None)
  Receive Date: 20090108
  Receipt Date: 20081230
  Transmission Date: 20090719
  Serious: Yes (Hospitalization, Disabling, Other)
  Sender: FDA-Public Use
  Company Number: GB-BAXTER-2009BH000005

PATIENT
  Age: 33 Year
  Sex: Male

DRUGS (9)
  1. FLUCONAZOLE [Suspect]
     Indication: PRODUCTIVE COUGH
     Route: 051
     Dates: start: 20081209, end: 20081209
  2. AMOXICILLIN [Suspect]
     Indication: PRODUCTIVE COUGH
     Route: 065
  3. CLARITHROMYCIN [Suspect]
     Indication: PRODUCTIVE COUGH
     Route: 065
  4. AMOXICILLIN + CLAVULANATE POTASSIUM [Suspect]
     Indication: PRODUCTIVE COUGH
     Route: 065
  5. CYCLIZINE [Suspect]
     Indication: PRODUCTIVE COUGH
     Route: 065
  6. ENOXAPARIN SODIUM [Suspect]
     Indication: PRODUCTIVE COUGH
     Route: 065
  7. METHADONE HCL [Suspect]
     Indication: PRODUCTIVE COUGH
     Route: 065
  8. SODIUM CHLORIDE [Suspect]
     Indication: PRODUCTIVE COUGH
     Route: 065
  9. ACETAMINOPHEN [Suspect]
     Indication: PRODUCTIVE COUGH
     Route: 065

REACTIONS (2)
  - ERYTHEMA [None]
  - URTICARIA [None]
